FAERS Safety Report 9183766 (Version 1)
Quarter: 2013Q1

REPORT INFORMATION
  Report Type: Spontaneous
  Country: GB (occurrence: GB)
  Receive Date: 20130322
  Receipt Date: 20130322
  Transmission Date: 20140127
  Serious: Yes (Other)
  Sender: FDA-Public Use
  Company Number: PHFR2013GB001788

PATIENT
  Age: 56 Year
  Sex: Female

DRUGS (3)
  1. CLOMIPRAMINE [Suspect]
     Indication: DEPRESSION
     Dosage: 150 MG DAILY
     Route: 048
     Dates: start: 2004
  2. PROPRANOLOL [Concomitant]
     Indication: ANXIETY
  3. DIAZEPAM [Concomitant]
     Indication: ANXIETY
     Dosage: 6 MG, QD
     Route: 048

REACTIONS (1)
  - Breast cancer [Recovering/Resolving]
